FAERS Safety Report 24048881 (Version 2)
Quarter: 2024Q3

REPORT INFORMATION
  Report Type: Report from Study
  Country: AU (occurrence: AU)
  Receive Date: 20240704
  Receipt Date: 20240723
  Transmission Date: 20241016
  Serious: Yes (Other)
  Sender: EMD SERONO INC
  Company Number: AU-Merck Healthcare KGaA-2024034462

PATIENT
  Age: 38 Year
  Sex: Male

DRUGS (2)
  1. SAIZEN [Suspect]
     Active Substance: SOMATROPIN
     Indication: Growth hormone deficiency
     Dosage: SELF-ADMINISTERS 5 DAYS A WEEK AT NIGHT
     Route: 058
     Dates: start: 20240201
  2. GENOTROPIN [Suspect]
     Active Substance: SOMATROPIN
     Indication: Growth hormone deficiency
     Dosage: 8-10 YEARS AGO (EXACT DATE NOT SPECIFIED)
     Route: 058
     Dates: start: 19960101, end: 20240201

REACTIONS (3)
  - Basal cell carcinoma [Recovering/Resolving]
  - Congenital melanocytic naevus [Recovering/Resolving]
  - Off label use [Unknown]

NARRATIVE: CASE EVENT DATE: 20240501
